FAERS Safety Report 11342963 (Version 1)
Quarter: 2015Q3

REPORT INFORMATION
  Report Type: Spontaneous
  Country: US (occurrence: US)
  Receive Date: 20150805
  Receipt Date: 20150805
  Transmission Date: 20151125
  Serious: No
  Sender: FDA-Public Use
  Company Number: US-AMGEN-USASP2015077759

PATIENT
  Age: 57 Year
  Sex: Female

DRUGS (1)
  1. NPLATE [Suspect]
     Active Substance: ROMIPLOSTIM
     Indication: IMMUNE THROMBOCYTOPENIC PURPURA
     Dosage: UNK
     Route: 065
     Dates: start: 2014

REACTIONS (9)
  - Speech disorder [Recovered/Resolved]
  - Choking sensation [Unknown]
  - Headache [Unknown]
  - Aggression [Unknown]
  - Agitation [Unknown]
  - Platelet count abnormal [Unknown]
  - Arthritis [Unknown]
  - Pain [Unknown]
  - Stupor [Unknown]
